FAERS Safety Report 16882208 (Version 3)
Quarter: 2019Q4

REPORT INFORMATION
  Report Type: Spontaneous
  Country: US (occurrence: US)
  Receive Date: 20191003
  Receipt Date: 20191209
  Transmission Date: 20200122
  Serious: Yes (Other)
  Sender: FDA-Public Use
  Company Number: US-COOPERSURGICAL, INC.-US-2019CPS002960

PATIENT
  Age: 39 Year
  Sex: Female

DRUGS (1)
  1. PARAGARD T 380A [Suspect]
     Active Substance: COPPER
     Indication: PRODUCT USED FOR UNKNOWN INDICATION
     Dosage: UNK
     Route: 015

REACTIONS (7)
  - Blood copper increased [Recovered/Resolved]
  - Nausea [Unknown]
  - Diabetes mellitus [Unknown]
  - Alopecia [Unknown]
  - Fatigue [Unknown]
  - Visual impairment [Unknown]
  - Endocrine disorder [Unknown]
